FAERS Safety Report 16569050 (Version 3)
Quarter: 2019Q3

REPORT INFORMATION
  Report Type: Spontaneous
  Country: HU (occurrence: HU)
  Receive Date: 20190713
  Receipt Date: 20190731
  Transmission Date: 20191004
  Serious: Yes (Life-Threatening, Hospitalization, Other)
  Sender: FDA-Public Use
  Company Number: PHHY2019HU158176

PATIENT
  Age: 66 Year
  Sex: Female

DRUGS (28)
  1. CLARITHROMYCIN. [Suspect]
     Active Substance: CLARITHROMYCIN
     Indication: PRODUCT USED FOR UNKNOWN INDICATION
     Dosage: 500 MG, UNK (2X500 MG)
     Route: 048
     Dates: start: 20181120, end: 20181123
  2. TIGECYCLINE. [Suspect]
     Active Substance: TIGECYCLINE
     Dosage: 100 MG, QD (100 MG, 1X/DAY)
     Route: 065
     Dates: start: 20190218, end: 20190225
  3. METHYLPREDNISOLONE. [Suspect]
     Active Substance: METHYLPREDNISOLONE
     Indication: RASH
     Dosage: 125 MG, UNK
     Route: 051
  4. METHYLPREDNISOLONE. [Suspect]
     Active Substance: METHYLPREDNISOLONE
     Dosage: 60 MG, QD (60 MG, DAILY FOR 3 DAYS)
     Route: 065
  5. IRON [Suspect]
     Active Substance: IRON
     Indication: PRODUCT USED FOR UNKNOWN INDICATION
     Dosage: UNK
     Route: 065
  6. METHOTREXATE. [Suspect]
     Active Substance: METHOTREXATE
     Indication: PRODUCT USED FOR UNKNOWN INDICATION
     Dosage: 7.5 MG, QD
     Route: 048
     Dates: start: 20190104, end: 20190607
  7. COLISTIN [Suspect]
     Active Substance: COLISTIN
     Indication: PRODUCT USED FOR UNKNOWN INDICATION
     Dosage: UNK
     Route: 042
  8. TIGECYCLINE. [Suspect]
     Active Substance: TIGECYCLINE
     Dosage: 100 MG, QD (100 MG, 1X/DAY)
     Route: 065
     Dates: start: 20180128, end: 20190204
  9. PENTAGLOBIN [Suspect]
     Active Substance: HUMAN IMMUNOGLOBULIN G
     Indication: PRODUCT USED FOR UNKNOWN INDICATION
     Dosage: 0.5 G/KG, UNK (0.5 G/KG IN IV PERFUSOR CONTINUOUSLY)
     Route: 042
     Dates: start: 20181204, end: 20181207
  10. MOXIFLOXACIN. [Suspect]
     Active Substance: MOXIFLOXACIN
     Indication: PRODUCT USED FOR UNKNOWN INDICATION
     Dosage: 400 MG, QD (400 MG DAILY)
     Route: 065
     Dates: start: 20181123, end: 20181127
  11. METHYLPREDNISOLONE. [Suspect]
     Active Substance: METHYLPREDNISOLONE
     Dosage: UNK
     Route: 065
  12. COLISTIN [Suspect]
     Active Substance: COLISTIN
     Dosage: 3X2 MIU THEN 2X2 MIU ADJUSTED TO RENAL FUNCTION
     Route: 042
     Dates: start: 20181228, end: 20190103
  13. COLISTIN [Suspect]
     Active Substance: COLISTIN
     Dosage: 1 MIU, UNK (2X1 MILLION IU)
     Route: 042
     Dates: start: 20190221, end: 20190225
  14. CEFTRIAXONE. [Suspect]
     Active Substance: CEFTRIAXONE
     Indication: PRODUCT USED FOR UNKNOWN INDICATION
     Dosage: 2 G, QD (2 G, DAILY)
     Route: 042
     Dates: start: 20181203, end: 20181226
  15. TEICOPLANIN [Suspect]
     Active Substance: TEICOPLANIN
     Indication: PRODUCT USED FOR UNKNOWN INDICATION
     Dosage: 400 MG, UNK (2X400 MG)
     Route: 042
     Dates: start: 20181222, end: 20181228
  16. PENTAGLOBIN [Suspect]
     Active Substance: HUMAN IMMUNOGLOBULIN G
     Dosage: 0.5 G/KG, UNK (0.5 G/KG IN PERFUSOR)
     Route: 042
     Dates: start: 20190111, end: 20190114
  17. METRONIDAZOLE. [Suspect]
     Active Substance: METRONIDAZOLE
     Indication: PRODUCT USED FOR UNKNOWN INDICATION
     Dosage: 1000 MG, QD (500 MG, 2X/DAY)
     Route: 042
     Dates: start: 20181205, end: 20181221
  18. ACETYLSALICYLIC ACID [Suspect]
     Active Substance: ASPIRIN
     Indication: PRODUCT USED FOR UNKNOWN INDICATION
     Dosage: 100 MG, QD (100 MG, DAILY 4 TIMES IN TOTAL)
     Route: 065
     Dates: start: 20181109, end: 20181119
  19. METHYLPREDNISOLONE. [Suspect]
     Active Substance: METHYLPREDNISOLONE
     Dosage: 80 MG, UNK (80 MG, FOR 2 DAYS)
     Route: 051
  20. COLISTIN [Suspect]
     Active Substance: COLISTIN
     Dosage: 2 MIU, UNK (3X2 MILLION IU)
     Route: 042
     Dates: start: 20190114, end: 20190208
  21. METHYLPREDNISOLONE. [Suspect]
     Active Substance: METHYLPREDNISOLONE
     Dosage: 20 MG, QD (20 MG, DAILY FOR 3 DAYS )
     Route: 048
     Dates: start: 20181114
  22. ANIDULAFUNGIN [Suspect]
     Active Substance: ANIDULAFUNGIN
     Dosage: 100 MG, QD (100 MG, 1X/DAY )
     Route: 065
  23. MEROPENEM. [Suspect]
     Active Substance: MEROPENEM
     Dosage: 3 G, QD (1 G, 3X/DAY)
     Route: 065
     Dates: start: 20190111, end: 20190121
  24. TIGECYCLINE. [Suspect]
     Active Substance: TIGECYCLINE
     Indication: PRODUCT USED FOR UNKNOWN INDICATION
     Dosage: 100 MG, QD (50 MG, 2X/DAY)
     Route: 065
  25. ANIDULAFUNGIN [Suspect]
     Active Substance: ANIDULAFUNGIN
     Indication: FEBRILE NEUTROPENIA
     Dosage: 200 MG, QD (200 MG, 1X/DAY)
     Route: 065
     Dates: start: 20190113, end: 20190121
  26. MEROPENEM. [Suspect]
     Active Substance: MEROPENEM
     Indication: PRODUCT USED FOR UNKNOWN INDICATION
     Dosage: 500 MG (2X500 MG)
     Route: 065
     Dates: start: 20181225, end: 20181228
  27. VANCOMYCIN [Suspect]
     Active Substance: VANCOMYCIN
     Indication: PRODUCT USED FOR UNKNOWN INDICATION
     Dosage: 500 MG, QD
     Route: 065
     Dates: start: 20181203, end: 20181213
  28. MALTOFER FOL [Suspect]
     Active Substance: FOLIC ACID\IRON POLYMALTOSE
     Indication: IRON DEFICIENCY ANAEMIA
     Dosage: 1 DF, UNK (2X1 TBL)
     Route: 048
     Dates: start: 20181220, end: 20190116

REACTIONS (9)
  - Neutropenia [Recovered/Resolved]
  - Anaemia [Recovered/Resolved]
  - Diarrhoea [Recovered/Resolved]
  - Impaired healing [Recovered/Resolved]
  - Wound haemorrhage [Recovered/Resolved]
  - Vomiting [Recovered/Resolved]
  - Thrombocytopenia [Recovered/Resolved]
  - Haemodynamic instability [Recovered/Resolved]
  - Morganella infection [Recovered/Resolved]

NARRATIVE: CASE EVENT DATE: 20190104
